FAERS Safety Report 23713180 (Version 1)
Quarter: 2024Q2

REPORT INFORMATION
  Report Type: Spontaneous
  Country: US (occurrence: None)
  Receive Date: 20240404
  Receipt Date: 20240404
  Transmission Date: 20240717
  Serious: No
  Sender: FDA-Public Use
  Company Number: None

PATIENT
  Age: 39 Year
  Sex: Female

DRUGS (1)
  1. BOTOX [Suspect]
     Active Substance: ONABOTULINUMTOXINA
     Route: 030
     Dates: start: 20240206

REACTIONS (23)
  - Fatigue [None]
  - Dysphagia [None]
  - Tongue disorder [None]
  - Dyspnoea [None]
  - Dry mouth [None]
  - Salivary gland disorder [None]
  - Salivary hypersecretion [None]
  - Dysphonia [None]
  - Dysarthria [None]
  - Nausea [None]
  - Vomiting [None]
  - Retching [None]
  - Diarrhoea [None]
  - Constipation [None]
  - Abdominal pain [None]
  - Eating disorder [None]
  - Urinary incontinence [None]
  - Dysuria [None]
  - Asthenia [None]
  - Paraesthesia [None]
  - Paraesthesia [None]
  - Weight decreased [None]
  - Tinnitus [None]

NARRATIVE: CASE EVENT DATE: 20240211
